FAERS Safety Report 19068176 (Version 1)
Quarter: 2021Q1

REPORT INFORMATION
  Report Type: Spontaneous
  Country: US (occurrence: US)
  Receive Date: 20210329
  Receipt Date: 20210329
  Transmission Date: 20210420
  Serious: Yes (Other)
  Sender: FDA-Public Use
  Company Number: US-GLAXOSMITHKLINE-US2021GSK069423

PATIENT
  Sex: Male

DRUGS (16)
  1. RANITIDINE. [Suspect]
     Active Substance: RANITIDINE
     Indication: GASTROINTESTINAL HAEMORRHAGE
  2. RANITIDINE CAPSULE [Suspect]
     Active Substance: RANITIDINE
     Indication: HELICOBACTER INFECTION
     Dosage: 150 MG, QD
     Route: 065
     Dates: start: 200801, end: 201909
  3. RANITIDINE. [Suspect]
     Active Substance: RANITIDINE
     Indication: HELICOBACTER INFECTION
     Dosage: 150 MG, QD
     Route: 065
     Dates: start: 200801, end: 201909
  4. RANITIDINE. [Suspect]
     Active Substance: RANITIDINE
     Indication: THROMBOSIS
  5. RANITIDINE. [Suspect]
     Active Substance: RANITIDINE
     Indication: HELICOBACTER INFECTION
     Dosage: 150 MG, QD
     Route: 065
     Dates: start: 200801, end: 201909
  6. ZANTAC [Suspect]
     Active Substance: RANITIDINE HYDROCHLORIDE
     Indication: GASTROINTESTINAL HAEMORRHAGE
  7. RANITIDINE CAPSULE [Suspect]
     Active Substance: RANITIDINE
     Indication: GASTROINTESTINAL HAEMORRHAGE
  8. RANITIDINE. [Suspect]
     Active Substance: RANITIDINE
     Indication: THROMBOSIS
  9. RANITIDINE CAPSULE [Suspect]
     Active Substance: RANITIDINE
     Indication: THROMBOSIS
  10. ZANTAC [Suspect]
     Active Substance: RANITIDINE HYDROCHLORIDE
     Indication: THROMBOSIS
  11. RANITIDINE. [Suspect]
     Active Substance: RANITIDINE
     Indication: HELICOBACTER INFECTION
     Dosage: 150 MG, QD
     Route: 065
     Dates: start: 200801, end: 201909
  12. RANITIDINE. [Suspect]
     Active Substance: RANITIDINE
     Indication: GASTROINTESTINAL HAEMORRHAGE
  13. RANITIDINE. [Suspect]
     Active Substance: RANITIDINE
     Indication: THROMBOSIS
  14. RANITIDINE. [Suspect]
     Active Substance: RANITIDINE
     Indication: GASTROINTESTINAL HAEMORRHAGE
  15. ZANTAC [Suspect]
     Active Substance: RANITIDINE HYDROCHLORIDE
  16. ZANTAC [Suspect]
     Active Substance: RANITIDINE HYDROCHLORIDE
     Indication: HELICOBACTER INFECTION
     Dosage: 150 MG, QD
     Route: 065
     Dates: start: 199001, end: 201909

REACTIONS (1)
  - Prostate cancer [Unknown]
